FAERS Safety Report 10215976 (Version 3)
Quarter: 2014Q3

REPORT INFORMATION
  Report Type: Report from Study
  Country: JP (occurrence: None)
  Receive Date: 20140602
  Receipt Date: 20140812
  Transmission Date: 20150326
  Serious: Yes (Hospitalization, Other)
  Sender: FDA-Public Use
  Company Number: 2014JP004418

PATIENT
  Age: 63 Year
  Sex: Female

DRUGS (12)
  1. DEPAKENE (VALPROATE SODIUM) [Concomitant]
  2. METGLUCO [Concomitant]
     Active Substance: METFORMIN HYDROCHLORIDE
  3. RIVOTRIL [Concomitant]
     Active Substance: CLONAZEPAM
  4. LAMICTAL [Concomitant]
     Active Substance: LAMOTRIGINE
  5. REGNITE (GABAPENTIN ENACARBIL) TABLET, 300MG [Suspect]
     Active Substance: GABAPENTIN ENACARBIL
     Indication: RESTLESS LEGS SYNDROME
     Route: 048
     Dates: start: 20130306, end: 20130307
  6. LANDSEN (CLONAZEPAM) [Concomitant]
  7. LULLAN (PEROSPIRONE HYDROCHLORIDE) [Concomitant]
  8. TETRAMIDE (MIANSERIN HYDROCHLORIDE) [Concomitant]
  9. LIMAS (LITHIUM CARBONATE) [Concomitant]
  10. BI SIFROL (PRAMIPEXOLE HYDROCHLORIDE) [Concomitant]
  11. LUNESTA [Concomitant]
     Active Substance: ESZOPICLONE
  12. LENDORMIN (BROTIZOLAM) [Concomitant]

REACTIONS (5)
  - Akathisia [None]
  - Condition aggravated [None]
  - Delirium [None]
  - Bipolar I disorder [None]
  - Insomnia [None]

NARRATIVE: CASE EVENT DATE: 20130307
